FAERS Safety Report 10072636 (Version 1)
Quarter: 2014Q2

REPORT INFORMATION
  Report Type: Spontaneous
  Country: US (occurrence: US)
  Receive Date: 20140411
  Receipt Date: 20140411
  Transmission Date: 20141212
  Serious: No
  Sender: FDA-Public Use
  Company Number: US-PFIZER INC-2014099317

PATIENT
  Age: 27 Year
  Sex: Female

DRUGS (6)
  1. MORPHINE SULFATE [Suspect]
     Dosage: UNK
  2. PHENERGAN [Suspect]
     Dosage: UNK
  3. AMBIEN [Suspect]
     Dosage: UNK
  4. TYLENOL WITH CODEINE [Suspect]
     Dosage: UNK
  5. CIPROFLOXIN [Suspect]
     Dosage: UNK
  6. LEVAQUIN [Suspect]
     Dosage: UNK

REACTIONS (1)
  - Drug hypersensitivity [Unknown]
